FAERS Safety Report 9688038 (Version 1)
Quarter: 2013Q4

REPORT INFORMATION
  Report Type: Spontaneous
  Country: HN (occurrence: HN)
  Receive Date: 20131114
  Receipt Date: 20131114
  Transmission Date: 20140711
  Serious: Yes (Other)
  Sender: FDA-Public Use
  Company Number: PHHY2013HN129605

PATIENT
  Sex: Female

DRUGS (3)
  1. ACLASTA [Suspect]
     Dosage: UNK
     Route: 042
     Dates: start: 2010
  2. ACLASTA [Suspect]
     Dosage: UNK
     Route: 042
     Dates: start: 2011
  3. ACLASTA [Suspect]
     Dosage: UNK
     Route: 042
     Dates: start: 201311

REACTIONS (2)
  - Lumbar vertebral fracture [Unknown]
  - Spinal compression fracture [Unknown]
